FAERS Safety Report 7945130-2 (Version None)
Quarter: 2011Q4

REPORT INFORMATION
  Report Type: 
  Country: None (occurrence: None)
  Receive Date: 20111129
  Receipt Date: 20111129
  Transmission Date: 20120403
  Serious: No
  Sender: FDA-Public Use
  Company Number: None

PATIENT
  Age: 71 Year
  Sex: Male
  Weight: 80 kg

DRUGS (3)
  1. GENTAMICIN [Concomitant]
  2. VANCOMYCIN [Suspect]
     Indication: PNEUMONIA
     Dosage: 1, 1.25, 1.5 G
     Route: 042
     Dates: start: 20110316, end: 20110322
  3. VANCOMYCIN [Suspect]
     Indication: UROSEPSIS
     Dosage: 1, 1.25, 1.5 G
     Route: 042
     Dates: start: 20110316, end: 20110322

REACTIONS (1)
  - NEPHROPATHY TOXIC [None]
